FAERS Safety Report 20583859 (Version 1)
Quarter: 2022Q1

REPORT INFORMATION
  Report Type: Spontaneous
  Country: US (occurrence: None)
  Receive Date: 20220311
  Receipt Date: 20220311
  Transmission Date: 20220423
  Serious: Yes (Hospitalization)
  Sender: FDA-Public Use
  Company Number: None

PATIENT
  Age: 77 Year
  Sex: Female

DRUGS (1)
  1. UPTRAVI [Suspect]
     Active Substance: SELEXIPAG
     Indication: Pulmonary arterial hypertension
     Dosage: FREQUENCY : DAILY;?
     Route: 048
     Dates: start: 20220109

REACTIONS (5)
  - Headache [None]
  - Diarrhoea [None]
  - Vomiting [None]
  - Sepsis [None]
  - Hepatic cirrhosis [None]

NARRATIVE: CASE EVENT DATE: 20220306
